FAERS Safety Report 25518072 (Version 5)
Quarter: 2025Q3

REPORT INFORMATION
  Report Type: Report from Study
  Country: US (occurrence: US)
  Receive Date: 20250704
  Receipt Date: 20250829
  Transmission Date: 20251021
  Serious: Yes (Other)
  Sender: CHIESI
  Company Number: US-CHIESI-2025CHF04559

PATIENT
  Age: 12 Year
  Sex: Female
  Weight: 33.447 kg

DRUGS (1)
  1. BIRCH BARK\HERBALS [Suspect]
     Active Substance: BIRCH BARK\HERBALS
     Indication: Epidermolysis bullosa
     Route: 061
     Dates: start: 20240814, end: 202506

REACTIONS (5)
  - Pseudomonas infection [Unknown]
  - Wrong technique in product usage process [Unknown]
  - Wound dehiscence [Recovering/Resolving]
  - Wound complication [Recovering/Resolving]
  - Product administration interrupted [Recovered/Resolved]

NARRATIVE: CASE EVENT DATE: 20250601
